FAERS Safety Report 21987904 (Version 2)
Quarter: 2023Q1

REPORT INFORMATION
  Report Type: Spontaneous
  Country: US (occurrence: None)
  Receive Date: 20230214
  Receipt Date: 20230314
  Transmission Date: 20230418
  Serious: No
  Sender: FDA-Public Use
  Company Number: 2023A030566

PATIENT
  Age: 8425 Day
  Sex: Female
  Weight: 83 kg

DRUGS (1)
  1. PULMICORT FLEXHALER [Suspect]
     Active Substance: BUDESONIDE
     Indication: Asthma
     Dosage: 90.0UG UNKNOWN
     Route: 055

REACTIONS (8)
  - Exposure during pregnancy [Unknown]
  - Asthma [Recovering/Resolving]
  - Dyspnoea [Recovering/Resolving]
  - Memory impairment [Not Recovered/Not Resolved]
  - Throat tightness [Recovering/Resolving]
  - Device leakage [Unknown]
  - Drug delivery system issue [Unknown]
  - Wrong technique in device usage process [Unknown]

NARRATIVE: CASE EVENT DATE: 20230203
